FAERS Safety Report 9180656 (Version 1)
Quarter: 2013Q1

REPORT INFORMATION
  Report Type: Spontaneous
  Country: BR (occurrence: BR)
  Receive Date: 20130322
  Receipt Date: 20130322
  Transmission Date: 20140127
  Serious: Yes (Hospitalization, Other)
  Sender: FDA-Public Use
  Company Number: BR-ELI_LILLY_AND_COMPANY-BR201303004874

PATIENT
  Age: 55 Year
  Sex: Male

DRUGS (5)
  1. HUMULIN NPH [Suspect]
     Indication: DIABETES MELLITUS
     Dosage: 34 IU, QD
     Route: 058
     Dates: start: 2003, end: 201209
  2. HUMULIN NPH [Suspect]
     Dosage: 14 IU, OTHER
     Route: 058
     Dates: start: 2003, end: 201209
  3. HUMULIN NPH [Suspect]
     Dosage: 12 IU, OTHER
     Route: 058
     Dates: start: 2003, end: 201209
  4. HUMALOG LISPRO [Suspect]
     Indication: DIABETES MELLITUS
     Dosage: 6 IU, QID
     Route: 058
     Dates: start: 201209
  5. NOVOLIN N [Concomitant]
     Dosage: UNK, UNKNOWN
     Route: 065

REACTIONS (6)
  - Blood glucose increased [Not Recovered/Not Resolved]
  - Syncope [Recovered/Resolved]
  - Road traffic accident [Recovered/Resolved]
  - Head injury [Recovered/Resolved]
  - Hypoglycaemia [Recovered/Resolved]
  - Blood glucose fluctuation [Not Recovered/Not Resolved]
